FAERS Safety Report 5075707-6 (Version None)
Quarter: 2006Q3

REPORT INFORMATION
  Report Type: 
  Country: None (occurrence: None)
  Receive Date: 20060807
  Receipt Date: 20060807
  Transmission Date: 20061208
  Serious: Yes (Death)
  Sender: FDA-Public Use
  Company Number: None

PATIENT
  Age: 43 Year
  Sex: Male
  Weight: 108.4097 kg

DRUGS (1)
  1. PRIMIDONE [Suspect]
     Indication: ESSENTIAL TREMOR
     Dosage: 250 MG BID PO
     Route: 048
     Dates: start: 20060322, end: 20060403

REACTIONS (2)
  - COMPLETED SUICIDE [None]
  - GUN SHOT WOUND [None]
